FAERS Safety Report 9242621 (Version 1)
Quarter: 2013Q2

REPORT INFORMATION
  Report Type: Spontaneous
  Country: US (occurrence: US)
  Receive Date: 20130419
  Receipt Date: 20130419
  Transmission Date: 20140414
  Serious: Yes (Death)
  Sender: FDA-Public Use
  Company Number: US-GLAXOSMITHKLINE-A1020665A

PATIENT
  Age: 57 Year
  Sex: Female

DRUGS (11)
  1. VOTRIENT [Suspect]
     Indication: RENAL CELL CARCINOMA
     Dosage: 800MG PER DAY
     Route: 048
  2. LEXAPRO [Concomitant]
  3. OMEPRAZOLE [Concomitant]
  4. VESICARE [Concomitant]
  5. DEXAMETHASONE [Concomitant]
  6. GABAPENTIN [Concomitant]
  7. ALPRAZOLAM [Concomitant]
  8. HYDROCODONE WITH APAP [Concomitant]
  9. ESTROGEN + METHYLTESTOSTERONE [Concomitant]
  10. ESTROGEN [Concomitant]
  11. ATENOLOL [Concomitant]

REACTIONS (1)
  - Death [Fatal]
